FAERS Safety Report 5371756-9 (Version None)
Quarter: 2007Q2

REPORT INFORMATION
  Report Type: 
  Country: None (occurrence: None)
  Receive Date: 20070619
  Receipt Date: 20070306
  Transmission Date: 20071010
  Serious: No
  Sender: FDA-Public Use
  Company Number: 2007US000570

PATIENT
  Age: 81 Year
  Sex: Male

DRUGS (13)
  1. SOLIFENACIN (SOLIFENACIN) TABLET, UNKNOWN [Suspect]
     Dosage: 5 MG, ORAL
     Route: 048
     Dates: start: 20070220
  2. NAMENDA [Concomitant]
  3. RAZADYER [Concomitant]
  4. LIPITOR [Concomitant]
  5. OMEGA 3 FISH OIL (FISH OIL) [Concomitant]
  6. CALCIUM CITRATE (CALCIUM CITRATE) [Concomitant]
  7. VITAMIN B COMPLEX WITH C (ASCORBIC ACID, THIAMINE MONONITRATE, CALCIUM [Concomitant]
  8. FOLIC ACID [Concomitant]
  9. ASPIRIN [Concomitant]
  10. AEROHIST PLUS (HYOSCINE, PHENYLEPHRINE, CHLORPHENAMINE) [Concomitant]
  11. ASMANEX TWISTHALER [Concomitant]
  12. COLACE (DOCUSATE SODIUM) [Concomitant]
  13. LISINOPRIL [Concomitant]

REACTIONS (1)
  - CONSTIPATION [None]
